FAERS Safety Report 20022101 (Version 1)
Quarter: 2021Q4

REPORT INFORMATION
  Report Type: Report from Study
  Country: US (occurrence: US)
  Receive Date: 20211102
  Receipt Date: 20211102
  Transmission Date: 20220303
  Serious: Yes (Death, Other)
  Sender: FDA-Public Use
  Company Number: US-ACADIA PHARMACEUTICALS INC.-ACA-2021-PIM-003637

PATIENT
  Sex: Female

DRUGS (12)
  1. NUPLAZID [Suspect]
     Active Substance: PIMAVANSERIN TARTRATE
     Indication: Parkinson^s disease
     Dosage: 34 MILLIGRAM, QD
     Route: 048
     Dates: start: 20200930
  2. NUPLAZID [Suspect]
     Active Substance: PIMAVANSERIN TARTRATE
     Indication: Hallucination
  3. ATORVASTATIN [Concomitant]
     Active Substance: ATORVASTATIN
  4. DILTIAZEM [Concomitant]
     Active Substance: DILTIAZEM
  5. ELIQUIS [Concomitant]
     Active Substance: APIXABAN
  6. LEVOTHYROXINE [Concomitant]
     Active Substance: LEVOTHYROXINE
  7. MEGESTROL [Concomitant]
     Active Substance: MEGESTROL
  8. MEMANTINE [Concomitant]
     Active Substance: MEMANTINE
  9. METOPROLOL [Concomitant]
     Active Substance: METOPROLOL
  10. MIRTAZAPINE [Concomitant]
     Active Substance: MIRTAZAPINE
  11. SERTRALINE [Concomitant]
     Active Substance: SERTRALINE HYDROCHLORIDE
  12. SUMATRIPTAN [Concomitant]
     Active Substance: SUMATRIPTAN

REACTIONS (2)
  - Parkinson^s disease [Recovered/Resolved]
  - Dementia with Lewy bodies [Recovered/Resolved]
